FAERS Safety Report 8970049 (Version 1)
Quarter: 2012Q4

REPORT INFORMATION
  Report Type: 
  Country: CN (occurrence: CN)
  Receive Date: 20121217
  Receipt Date: 20121217
  Transmission Date: 20130627
  Serious: Yes (Death)
  Sender: FDA-Public Use
  Company Number: PHHY2012CN114119

PATIENT
  Sex: Male

DRUGS (1)
  1. SEBIVO [Suspect]
     Indication: CHRONIC HEPATITIS B
     Dosage: UNK UKN, UNK

REACTIONS (1)
  - Rhabdomyolysis [Fatal]
